FAERS Safety Report 8909094 (Version 1)
Quarter: 2012Q4

REPORT INFORMATION
  Report Type: 
  Country: PT (occurrence: PT)
  Receive Date: 20121114
  Receipt Date: 20121114
  Transmission Date: 20130627
  Serious: Yes (Other)
  Sender: FDA-Public Use
  Company Number: PT-PFIZER INC-2012282173

PATIENT
  Sex: Female

DRUGS (1)
  1. TAZOBAC [Suspect]

REACTIONS (2)
  - Similar reaction on previous exposure to drug [Recovered/Resolved]
  - Drug hypersensitivity [Recovered/Resolved]
